FAERS Safety Report 10165846 (Version 1)
Quarter: 2014Q2

REPORT INFORMATION
  Report Type: Spontaneous
  Country: None (occurrence: US)
  Receive Date: 20140510
  Receipt Date: 20140510
  Transmission Date: 20141212
  Serious: No
  Sender: FDA-Public Use
  Company Number: US-BRISTOL-MYERS SQUIBB COMPANY-19981786

PATIENT
  Age: 37 Year
  Sex: Male

DRUGS (3)
  1. BYDUREON [Suspect]
     Indication: TYPE 2 DIABETES MELLITUS
     Route: 058
  2. METFORMIN HCL [Suspect]
  3. GLIMEPIRIDE [Suspect]

REACTIONS (1)
  - Glycosylated haemoglobin increased [Unknown]
